FAERS Safety Report 17899438 (Version 1)
Quarter: 2020Q2

REPORT INFORMATION
  Report Type: Spontaneous
  Country: NZ (occurrence: NZ)
  Receive Date: 20200616
  Receipt Date: 20200616
  Transmission Date: 20200714
  Serious: Yes (Hospitalization)
  Sender: FDA-Public Use
  Company Number: NZ-TEVA-2020-NZ-1505631

PATIENT
  Age: 73 Year
  Sex: Female

DRUGS (5)
  1. MULTIVITAMIN [Suspect]
     Active Substance: VITAMINS
     Route: 065
  2. MAGNESIUM [Suspect]
     Active Substance: MAGNESIUM
     Indication: DYSPEPSIA
     Dosage: SHE CONSUMED AN OVER THE COUNTER MAGNESIUM SALT
     Route: 065
  3. PANTOPRAZOLE [Suspect]
     Active Substance: PANTOPRAZOLE
     Indication: GASTROOESOPHAGEAL REFLUX DISEASE
     Route: 065
  4. RAMIPRIL. [Concomitant]
     Active Substance: RAMIPRIL
     Route: 065
  5. THIAMINE HYDROCHLORIDE. [Suspect]
     Active Substance: THIAMINE HYDROCHLORIDE
     Route: 065

REACTIONS (1)
  - Refeeding syndrome [Recovered/Resolved]
